FAERS Safety Report 7333623-0 (Version None)
Quarter: 2011Q1

REPORT INFORMATION
  Report Type: 
  Country: None (occurrence: None)
  Receive Date: 20110305
  Receipt Date: 20110301
  Transmission Date: 20110831
  Serious: Yes (Hospitalization)
  Sender: FDA-Public Use
  Company Number: CA-ABBOTT-11P-028-0708389-00

PATIENT
  Sex: Male

DRUGS (1)
  1. HUMIRA [Suspect]
     Indication: CROHN'S DISEASE
     Route: 058
     Dates: start: 20080606, end: 20101201

REACTIONS (4)
  - INFECTION [None]
  - DEHYDRATION [None]
  - INTESTINAL OBSTRUCTION [None]
  - ABDOMINAL PAIN [None]
